FAERS Safety Report 7693715-3 (Version None)
Quarter: 2011Q3

REPORT INFORMATION
  Report Type: 
  Country: None (occurrence: None)
  Receive Date: 20110819
  Receipt Date: 20110809
  Transmission Date: 20111222
  Serious: Yes (Other)
  Sender: FDA-Public Use
  Company Number: AU-JNJFOC-20110708220

PATIENT
  Sex: Female
  Weight: 50 kg

DRUGS (9)
  1. HYDROCORTISONE [Concomitant]
     Indication: PREMEDICATION
  2. HYDROCORTISONE [Concomitant]
     Route: 042
     Dates: start: 20110628
  3. REMICADE [Suspect]
     Indication: CROHN'S DISEASE
     Route: 042
  4. REMICADE [Suspect]
     Route: 042
     Dates: start: 20110628
  5. ANTIHISTAMINE [Concomitant]
     Indication: PREMEDICATION
  6. REMICADE [Suspect]
     Route: 042
     Dates: start: 20110712
  7. ACETAMINOPHEN [Concomitant]
     Indication: PREMEDICATION
  8. REMICADE [Suspect]
     Dosage: GIVEN A NUMBER OF YEARS AGO BEFORE IT WAS ON PBS LISTING FOR 2-3 INFUSIONS
     Route: 042
     Dates: start: 20040101
  9. HYDROCORTISONE [Concomitant]
     Route: 042
     Dates: start: 20110712

REACTIONS (6)
  - OEDEMA MOUTH [None]
  - INFUSION RELATED REACTION [None]
  - ERYTHEMA [None]
  - DYSPNOEA [None]
  - ARTHRALGIA [None]
  - TACHYCARDIA [None]
